FAERS Safety Report 9310523 (Version 4)
Quarter: 2013Q4

REPORT INFORMATION
  Report Type: Spontaneous
  Country: US (occurrence: US)
  Receive Date: 20130527
  Receipt Date: 20131204
  Transmission Date: 20140711
  Serious: Yes (Death, Other)
  Sender: FDA-Public Use
  Company Number: US-PFIZER INC-2013160664

PATIENT
  Sex: Male

DRUGS (1)
  1. LYRICA [Suspect]
     Dosage: UNK

REACTIONS (3)
  - Cerebrovascular accident [Fatal]
  - Back disorder [Unknown]
  - Musculoskeletal disorder [Unknown]
